FAERS Safety Report 16926940 (Version 1)
Quarter: 2019Q4

REPORT INFORMATION
  Report Type: Report from Study
  Country: US (occurrence: US)
  Receive Date: 20191016
  Receipt Date: 20191016
  Transmission Date: 20200122
  Serious: Yes (Death, Hospitalization, Other)
  Sender: FDA-Public Use
  Company Number: US-MYLANLABS-2019M1098248

PATIENT
  Weight: 102 kg

DRUGS (3)
  1. CLOZAPINE. [Suspect]
     Active Substance: CLOZAPINE
     Dosage: 100 MILLIGRAM
     Dates: start: 2019
  2. CLOZAPINE. [Suspect]
     Active Substance: CLOZAPINE
     Indication: SCHIZOAFFECTIVE DISORDER
     Dosage: 25 MILLIGRAM, QD
     Route: 048
     Dates: start: 201902
  3. CLOZAPINE. [Suspect]
     Active Substance: CLOZAPINE
     Dosage: 150 MILLIGRAM
     Dates: start: 2019

REACTIONS (3)
  - Hospitalisation [Recovered/Resolved]
  - Antipsychotic drug level increased [Unknown]
  - Death [Fatal]

NARRATIVE: CASE EVENT DATE: 2019
